FAERS Safety Report 8300332-0 (Version None)
Quarter: 2012Q1

REPORT INFORMATION
  Report Type: 
  Country: None (occurrence: None)
  Receive Date: 20120326
  Receipt Date: 20110621
  Transmission Date: 20120608
  Serious: Yes (Other)
  Sender: FDA-Public Use
  Company Number: PHHY2011US48285

PATIENT
  Age: 54 Year
  Sex: Female

DRUGS (4)
  1. TASIGNA [Suspect]
     Dosage: 300 MG, BID, ORAL
     Route: 048
     Dates: start: 20101231
  2. SYNTHROID [Concomitant]
  3. LEXAPRO [Concomitant]
  4. AMBLOSIN (AMPICILLIN) [Concomitant]

REACTIONS (3)
  - DRUG ERUPTION [None]
  - PLEURAL EFFUSION [None]
  - RASH [None]
